FAERS Safety Report 6169573-5 (Version None)
Quarter: 2009Q2

REPORT INFORMATION
  Report Type: 
  Country: None (occurrence: None)
  Receive Date: 20090428
  Receipt Date: 20090420
  Transmission Date: 20091009
  Serious: Yes (Other)
  Sender: FDA-Public Use
  Company Number: US-JNJFOC-20090200296

PATIENT
  Sex: Male
  Weight: 76.2 kg

DRUGS (8)
  1. REMICADE [Suspect]
     Route: 042
  2. REMICADE [Suspect]
     Route: 042
  3. REMICADE [Suspect]
     Route: 042
  4. REMICADE [Suspect]
     Indication: COLITIS ULCERATIVE
     Route: 042
  5. PREDNISONE TAB [Concomitant]
     Indication: COLITIS ULCERATIVE
  6. LIALDA [Concomitant]
     Indication: COLITIS ULCERATIVE
  7. LIPITOR [Concomitant]
     Indication: HYPERLIPIDAEMIA
  8. IMURAN [Concomitant]
     Indication: COLITIS ULCERATIVE

REACTIONS (2)
  - MALIGNANT MELANOMA [None]
  - MALIGNANT MELANOMA OF SITES OTHER THAN SKIN [None]
